FAERS Safety Report 6319324-6 (Version None)
Quarter: 2009Q3

REPORT INFORMATION
  Report Type: 
  Country: None (occurrence: None)
  Receive Date: 20090821
  Receipt Date: 20080912
  Transmission Date: 20100115
  Serious: No
  Sender: FDA-Public Use
  Company Number: US-ABBOTT-08P-163-0472953-00

PATIENT
  Sex: Female
  Weight: 88.984 kg

DRUGS (7)
  1. NIASPAN [Suspect]
     Indication: BLOOD CHOLESTEROL INCREASED
     Route: 048
     Dates: start: 20080826, end: 20080826
  2. NIASPAN [Suspect]
     Route: 048
     Dates: start: 20080828, end: 20080828
  3. DIABENES [Concomitant]
     Indication: DIABETES MELLITUS
     Route: 048
     Dates: start: 20030101
  4. METFORMIN HYDROCHLORIDE [Concomitant]
     Indication: DIABETES MELLITUS
     Route: 048
     Dates: start: 20040101
  5. POTASSIUM CHLORIDE [Concomitant]
     Indication: DIURETIC THERAPY
     Route: 048
     Dates: start: 20070101
  6. FUROSEMIDE [Concomitant]
     Indication: FLUID RETENTION
     Route: 048
     Dates: start: 20030101
  7. LIDOCAINE HYDROCHLORIDE [Concomitant]
     Indication: MUSCULOSKELETAL PAIN
     Dates: start: 19990101

REACTIONS (1)
  - BLOOD GLUCOSE INCREASED [None]
